FAERS Safety Report 8343268-1 (Version None)
Quarter: 2012Q2

REPORT INFORMATION
  Report Type: 
  Country: None (occurrence: None)
  Receive Date: 20120508
  Receipt Date: 20120430
  Transmission Date: 20120825
  Serious: Yes (Hospitalization)
  Sender: FDA-Public Use
  Company Number: US-BAYER-2012-015101

PATIENT
  Age: 48 Year
  Sex: Female

DRUGS (15)
  1. PROVENTIL [Concomitant]
     Dosage: 6.7 GM 2 PUFFS EVERY 4 HOURS AS NEEDED
     Route: 048
  2. ADVAIR DISKUS 100/50 [Concomitant]
  3. SINGULAIR [Concomitant]
     Dosage: 10 MG 1 TABLET EVERY EVENING
     Route: 048
  4. GLUCOSAMINE CHONDROITIN [Concomitant]
     Dosage: UNK
     Dates: start: 20091221
  5. PROTONIX [Concomitant]
  6. CIPROFLOXACIN [Concomitant]
     Dosage: 500 MG 1 TABLET TWICE DAILY
     Dates: start: 20091216
  7. ADVAIR DISKUS 100/50 [Concomitant]
     Dosage: 250/50 MCG INHALE 1 PUFF DAILY
     Route: 048
  8. ANTIBIOTICS [Concomitant]
     Indication: DIARRHOEA
  9. DIPHENOXYLATE [Concomitant]
     Indication: DIARRHOEA
     Dosage: 2 TABLETS NOW, THEN 1 TABLET AFTER EACH DIARRHEA BOWEL MOVEMENT
     Route: 048
     Dates: start: 20091216
  10. LOMOTIL [Concomitant]
     Indication: DIARRHOEA
     Dosage: 0.025 MG - 2.5 MG 2 STAT THEN 1 AFTER EACH DIARRHEA
     Dates: start: 20091216
  11. ALBUTEROL [Concomitant]
  12. YAZ [Suspect]
     Indication: ACNE
     Dosage: UNK
     Dates: start: 20090901
  13. YAZ [Suspect]
     Indication: MENOPAUSAL SYMPTOMS
  14. YASMIN [Suspect]
     Indication: ACNE
     Dosage: UNK
     Dates: start: 20090901
  15. ANTIBIOTICS [Concomitant]
     Indication: OSTEOARTHRITIS

REACTIONS (3)
  - DEEP VEIN THROMBOSIS [None]
  - INJURY [None]
  - PAIN [None]
